FAERS Safety Report 4330167-5 (Version None)
Quarter: 2004Q2

REPORT INFORMATION
  Report Type: 
  Country: None (occurrence: None)
  Receive Date: 20040401
  Receipt Date: 20040322
  Transmission Date: 20050107
  Serious: Yes (Hospitalization)
  Sender: FDA-Public Use
  Company Number: 7696

PATIENT
  Sex: Female

DRUGS (6)
  1. ACYCLOVIR [Suspect]
     Indication: HERPES ZOSTER
     Dosage: 400 MG OTH PO
     Route: 048
     Dates: start: 20040305, end: 20040308
  2. OMEPRAZOLE [Concomitant]
  3. SEVELAMER [Concomitant]
  4. AMLODIPINE [Concomitant]
  5. ATENOLOL [Concomitant]
  6. ALFACALCIDOL [Concomitant]

REACTIONS (3)
  - CONFUSIONAL STATE [None]
  - DISORIENTATION [None]
  - NEUROTOXICITY [None]
